FAERS Safety Report 9476573 (Version 7)
Quarter: 2013Q4

REPORT INFORMATION
  Report Type: Report from Study
  Country: US (occurrence: US)
  Receive Date: 20130826
  Receipt Date: 20131220
  Transmission Date: 20140711
  Serious: Yes (Other)
  Sender: FDA-Public Use
  Company Number: US-JNJFOC-20130611412

PATIENT
  Age: 67 Year
  Sex: Female

DRUGS (14)
  1. REMICADE [Suspect]
     Indication: RHEUMATOID ARTHRITIS
     Route: 042
     Dates: start: 20121003, end: 20130321
  2. METHOTREXATE [Concomitant]
     Indication: RHEUMATOID ARTHRITIS
     Route: 065
     Dates: start: 201208, end: 20130703
  3. METHOTREXATE [Concomitant]
     Indication: DEFORMITY
     Route: 065
     Dates: start: 201208, end: 20130703
  4. METHOTREXATE [Concomitant]
     Indication: PAIN
     Route: 065
     Dates: start: 201208, end: 20130703
  5. ISONIAZID [Concomitant]
     Indication: EXPOSURE TO COMMUNICABLE DISEASE
     Route: 065
     Dates: start: 201212, end: 20130731
  6. LEUCOVORIN CALCIUM [Concomitant]
     Indication: PROPHYLAXIS
     Route: 065
     Dates: start: 201306, end: 20130703
  7. WARFARIN [Concomitant]
     Indication: THROMBOSIS
     Route: 065
     Dates: start: 200911
  8. MULTIVITAMINS [Concomitant]
     Route: 065
  9. ASPIRIN [Concomitant]
     Route: 065
  10. CALCIUM [Concomitant]
     Route: 065
  11. LOSARTAN [Concomitant]
     Route: 065
  12. TRAMADOL [Concomitant]
     Route: 065
  13. PREVACID [Concomitant]
     Route: 065
  14. NIFEDIPINE [Concomitant]
     Route: 065

REACTIONS (5)
  - Alopecia [Not Recovered/Not Resolved]
  - Rash [Not Recovered/Not Resolved]
  - Exposure to communicable disease [Unknown]
  - Skin infection [Not Recovered/Not Resolved]
  - Psoriasis [Recovered/Resolved]
